FAERS Safety Report 23343183 (Version 1)
Quarter: 2023Q4

REPORT INFORMATION
  Report Type: Spontaneous
  Country: US (occurrence: US)
  Receive Date: 20231227
  Receipt Date: 20231227
  Transmission Date: 20240109
  Serious: No
  Sender: FDA-Public Use
  Company Number: US-BRISTOL-MYERS SQUIBB COMPANY-2023-187995

PATIENT
  Age: 80 Year
  Sex: Male

DRUGS (1)
  1. LENALIDOMIDE [Suspect]
     Active Substance: LENALIDOMIDE
     Indication: Plasma cell myeloma
     Dosage: FREQ -TAKE 1 CAPSULE BY MOUTH EVERY DAY FOR 14 DAYS FOLLOWED BY 14 DAYS?OFF EVERY 28 DAY CYCLE
     Route: 048
     Dates: start: 20231212, end: 20231227

REACTIONS (3)
  - Defaecation disorder [Not Recovered/Not Resolved]
  - Dysphonia [Not Recovered/Not Resolved]
  - Off label use [Unknown]
